FAERS Safety Report 6793471-7 (Version None)
Quarter: 2010Q2

REPORT INFORMATION
  Report Type: 
  Country: None (occurrence: None)
  Receive Date: 20100624
  Receipt Date: 20100331
  Transmission Date: 20101027
  Serious: Yes (Death)
  Sender: FDA-Public Use
  Company Number: US-MYLANLABS-2010S1005636

PATIENT
  Age: 65 Year
  Sex: Male

DRUGS (5)
  1. CLOZAPINE [Suspect]
     Indication: BIPOLAR I DISORDER
     Route: 048
     Dates: start: 20000101, end: 20100101
  2. CLOZAPINE [Suspect]
     Route: 048
     Dates: start: 20000101, end: 20100101
  3. TRILEPTAL [Concomitant]
  4. LAMICTAL [Concomitant]
  5. KLONOPIN [Concomitant]
     Route: 048

REACTIONS (4)
  - CARDIAC ARREST [None]
  - CHOKING [None]
  - OBSTRUCTIVE AIRWAYS DISORDER [None]
  - RESPIRATORY FAILURE [None]
